FAERS Safety Report 17390195 (Version 1)
Quarter: 2020Q1

REPORT INFORMATION
  Report Type: Spontaneous
  Country: US (occurrence: US)
  Receive Date: 20200207
  Receipt Date: 20200207
  Transmission Date: 20200409
  Serious: No
  Sender: FDA-Public Use
  Company Number: US-SLATE RUN PHARMACEUTICALS-SLTR-AE-19-128

PATIENT
  Age: 18 Year
  Sex: Male

DRUGS (1)
  1. 70436-089-55 GANCICLOVIR FOR INJECTION DRY VIAL USP 500 MG [Suspect]
     Active Substance: GANCICLOVIR SODIUM
     Indication: CYTOMEGALOVIRUS CHORIORETINITIS
     Route: 042

REACTIONS (1)
  - Drug resistance [Unknown]
